FAERS Safety Report 10370915 (Version 1)
Quarter: 2014Q1

REPORT INFORMATION
  Report Type: Spontaneous
  Country: US (occurrence: None)
  Receive Date: 20140306
  Receipt Date: 20140306
  Transmission Date: 20141002
  Serious: Yes (Other)
  Sender: FDA-Public Use
  Company Number: 163-21880-13080735

PATIENT
  Age: 64 Year
  Sex: Male
  Weight: 106 kg

DRUGS (9)
  1. REVLIMID (LENALIDOMIDE) (10 MILLIGRAM, CAPSULES) [Suspect]
     Indication: PLASMA CELL MYELOMA
     Route: 048
     Dates: start: 201203
  2. TYLENOL EXTRA STRENGTH (PARACETAMOL) (CAPSULES) [Concomitant]
  3. PREDNISONE (PREDNISONE) (TABLETS) [Concomitant]
  4. GABAPENTIN (GABAPENTIN) (CAPSULES) [Concomitant]
  5. VALTREX (VALACICLOVIR HYDROCHLORIDE) (CAPSULES) [Concomitant]
  6. METOPROLOL SUCCINATE (METOPROLOL SUCCINATE) (TABLETS) [Concomitant]
  7. NEXIUM (ESOMEPRAZOLE) (CAPSULES) [Concomitant]
  8. WARFARIN SODIUM (WARFARIN SODIUM) (TABLETS) [Concomitant]
  9. ZETIA (EZETIMIBE) (TABLETS) [Concomitant]

REACTIONS (1)
  - Thrombosis [None]
